FAERS Safety Report 14240278 (Version 1)
Quarter: 2017Q4

REPORT INFORMATION
  Report Type: Spontaneous
  Country: US (occurrence: US)
  Receive Date: 20171130
  Receipt Date: 20171130
  Transmission Date: 20180321
  Serious: No
  Sender: FDA-Public Use
  Company Number: US-MYLANLABS-2017M1071721

PATIENT
  Age: 63 Year
  Sex: Female
  Weight: 109 kg

DRUGS (1)
  1. TOLMETIN SODIUM TABLETS, USP [Suspect]
     Active Substance: TOLMETIN
     Indication: GOUT
     Dosage: UNK
     Route: 048

REACTIONS (4)
  - Product availability issue [Unknown]
  - Mouth ulceration [Recovered/Resolved]
  - Drug effective for unapproved indication [Not Recovered/Not Resolved]
  - Off label use [Not Recovered/Not Resolved]
